FAERS Safety Report 5619565-7 (Version None)
Quarter: 2008Q1

REPORT INFORMATION
  Report Type: 
  Country: None (occurrence: None)
  Receive Date: 20080205
  Receipt Date: 20080205
  Transmission Date: 20080703
  Serious: No
  Sender: FDA-Public Use
  Company Number: None

PATIENT
  Age: 56 Year
  Sex: Female
  Weight: 111.1313 kg

DRUGS (1)
  1. GADOLINIUM CONTRAST [Suspect]
     Indication: NUCLEAR MAGNETIC RESONANCE IMAGING
     Dosage: ONCE IV BOLUS
     Route: 040
     Dates: start: 20030418, end: 20030418

REACTIONS (9)
  - DYSPNOEA [None]
  - GAIT DISTURBANCE [None]
  - MALAISE [None]
  - MUSCULOSKELETAL CHEST PAIN [None]
  - OEDEMA PERIPHERAL [None]
  - PAIN IN EXTREMITY [None]
  - PELVIC PAIN [None]
  - SKIN BURNING SENSATION [None]
  - SKIN INFLAMMATION [None]
